FAERS Safety Report 6166729-2 (Version None)
Quarter: 2009Q2

REPORT INFORMATION
  Report Type: 
  Country: None (occurrence: None)
  Receive Date: 20090424
  Receipt Date: 20090327
  Transmission Date: 20091009
  Serious: Yes (Hospitalization)
  Sender: FDA-Public Use
  Company Number: FR-PFIZER INC-2008159110

PATIENT

DRUGS (19)
  1. BLINDED *PLACEBO [Suspect]
     Indication: CARDIAC FAILURE
     Dosage: UNK
     Route: 048
     Dates: start: 20061120, end: 20070115
  2. BLINDED EPLERENONE [Suspect]
     Indication: CARDIAC FAILURE
     Dosage: UNK
     Route: 048
     Dates: start: 20061120, end: 20070115
  3. BLINDED *PLACEBO [Suspect]
     Indication: ATRIAL FIBRILLATION
  4. BLINDED EPLERENONE [Suspect]
     Indication: ATRIAL FIBRILLATION
  5. ATACAND [Concomitant]
     Dosage: 8 MG, 1X/DAY
     Route: 048
  6. BUMEX [Concomitant]
     Dosage: 5 MG, UNK
     Route: 048
  7. CARDENSIEL [Concomitant]
     Dosage: 2.5 MG, UNK
     Route: 048
  8. CHONDROITIN SULFATE SODIUM [Concomitant]
     Dosage: 200 MG, 2X/DAY
     Route: 048
  9. CORDARONE [Concomitant]
     Dosage: 200 MG, 1X/DAY
     Route: 048
  10. CRESTOR [Concomitant]
     Dosage: 10 MG, UNK
     Route: 048
  11. EZETROL [Concomitant]
     Dosage: 1 DF, 1X/DAY
     Route: 048
  12. FORLAX [Concomitant]
     Dosage: 3 DF, UNK
     Route: 048
  13. DL-LYSINE ACETYLSALICYLATE [Concomitant]
     Dosage: 75 MG, 1X/DAY
     Route: 048
  14. OMEPRAZOLE [Concomitant]
     Dosage: 20 MG, 1X/DAY
     Route: 048
  15. PREVISCAN [Concomitant]
     Dosage: 20 MG, 1X/DAY
     Route: 048
  16. SERETIDE DISKUS [Concomitant]
     Dosage: 2 DF, 2X/DAY
     Route: 055
  17. XYZAL [Concomitant]
     Dosage: 5 MG, 1X/DAY
     Route: 048
  18. SODIUM POLYSTYRENE SULFONATE [Concomitant]
     Dosage: 2 DF, 1X/DAY
     Dates: end: 20081208
  19. TADENAN [Concomitant]
     Dosage: 50 MG, 2X/DAY
     Route: 048

REACTIONS (2)
  - DUPUYTREN'S CONTRACTURE [None]
  - HAEMATOMA [None]
